FAERS Safety Report 17557688 (Version 2)
Quarter: 2020Q3

REPORT INFORMATION
  Report Type: Other
  Country: DE (occurrence: DE)
  Receive Date: 20200318
  Receipt Date: 20200730
  Transmission Date: 20201102
  Serious: Yes (Death, Hospitalization, Other)
  Sender: FDA-Public Use
  Company Number: DE-CELLTRION INC.-2019DE020187

PATIENT

DRUGS (11)
  1. PERTUZUMAB. [Suspect]
     Active Substance: PERTUZUMAB
     Dosage: 420 MG, CYCLIC, (MOST RECENT DOSE)
     Route: 065
     Dates: start: 20190523
  2. TRASTUZUMAB (UNKNOWN) [Suspect]
     Active Substance: TRASTUZUMAB
     Indication: BREAST CANCER
     Dosage: 860 MG/CYCLE
     Route: 042
     Dates: start: 20181203
  3. PERTUZUMAB. [Suspect]
     Active Substance: PERTUZUMAB
     Indication: BREAST CANCER
     Dosage: 420 MG, CYCLIC
     Route: 065
     Dates: start: 20181203, end: 20181227
  4. ERYTHROCYTES [Concomitant]
     Active Substance: HUMAN RED BLOOD CELL
     Dosage: 550 MILLILITER (AS REQUIRED)
     Route: 042
     Dates: start: 20190524, end: 20190524
  5. TRASTUZUMAB (UNKNOWN) [Suspect]
     Active Substance: TRASTUZUMAB
     Dosage: 860 MG PER 1 CYCLE
     Route: 042
     Dates: start: 20181203, end: 20190613
  6. DOCETAXEL. [Suspect]
     Active Substance: DOCETAXEL
     Indication: BREAST CANCER
     Dosage: 200 MG PER 1 CYCLE
     Route: 042
     Dates: start: 20181203, end: 20190502
  7. TRASTUZUMAB (UNKNOWN) [Suspect]
     Active Substance: TRASTUZUMAB
     Dosage: 860MG, CYCLIC
     Route: 041
     Dates: start: 20181203, end: 20191227
  8. TRASTUZUMAB (UNKNOWN) [Suspect]
     Active Substance: TRASTUZUMAB
     Dosage: 642 MG (MOST RECENT DOSE)
     Route: 042
     Dates: start: 20190523
  9. RED BLOOD CELLS [Concomitant]
     Active Substance: HUMAN RED BLOOD CELL
     Dosage: 550 ML, AS REQUIRED
     Route: 042
     Dates: start: 20190524, end: 20190524
  10. TRASTUZUMAB (UNKNOWN) [Suspect]
     Active Substance: TRASTUZUMAB
     Dosage: 642 MG/CYCLE
     Route: 042
     Dates: start: 20181227
  11. DOCETAXEL. [Suspect]
     Active Substance: DOCETAXEL
     Dosage: 150 MG PER 1 CYCLE (MOST RECENT DOSE OF DOCETAXEL PRIOR TO SAE)
     Route: 042
     Dates: start: 20190613

REACTIONS (7)
  - Headache [Recovered/Resolved]
  - Asthma [Fatal]
  - Death [Fatal]
  - Overdose [Unknown]
  - Product use issue [Unknown]
  - Dizziness [Fatal]
  - Vertigo [Fatal]

NARRATIVE: CASE EVENT DATE: 20190115
